FAERS Safety Report 5274980-9 (Version None)
Quarter: 2007Q1

REPORT INFORMATION
  Report Type: 
  Country: None (occurrence: None)
  Receive Date: 20061207
  Receipt Date: 20040916
  Transmission Date: 20070707
  Serious: Yes (Other)
  Sender: FDA-Public Use
  Company Number: 2004UW19399

PATIENT
  Age: 28 Year
  Sex: Male

DRUGS (2)
  1. TOPROL-XL [Suspect]
     Indication: HEART RATE INCREASED
     Dates: start: 20040730
  2. TOPROL-XL [Suspect]
     Indication: HEART RATE INCREASED
     Dosage: 75 MG PO
     Route: 048

REACTIONS (3)
  - BLOOD PRESSURE INCREASED [None]
  - HEART RATE INCREASED [None]
  - MEDICATION ERROR [None]
